FAERS Safety Report 19609480 (Version 1)
Quarter: 2021Q3

REPORT INFORMATION
  Report Type: Spontaneous
  Country: JP (occurrence: JP)
  Receive Date: 20210726
  Receipt Date: 20210726
  Transmission Date: 20211014
  Serious: Yes (Hospitalization)
  Sender: FDA-Public Use
  Company Number: JP-TEVA-2021-JP-1935864

PATIENT
  Age: 29 Year
  Sex: Female

DRUGS (3)
  1. LETROZOLE. [Suspect]
     Active Substance: LETROZOLE
     Indication: INTRADUCTAL PROLIFERATIVE BREAST LESION
     Dosage: 5 MILLIGRAM DAILY;
     Route: 048
  2. GANIRELIX [Concomitant]
     Active Substance: GANIRELIX
     Indication: OOCYTE HARVEST
     Dosage: .25 MILLIGRAM DAILY;
     Route: 065
  3. NASANYL [SIC] [Concomitant]
     Indication: OOCYTE HARVEST
     Dosage: TWO DOSE
     Route: 045

REACTIONS (5)
  - Ovarian hyperstimulation syndrome [Recovering/Resolving]
  - Ovarian rupture [Recovering/Resolving]
  - Ovarian haemorrhage [Recovering/Resolving]
  - Haemoglobin decreased [Recovering/Resolving]
  - Haemoperitoneum [Recovering/Resolving]
